FAERS Safety Report 4414078-2 (Version None)
Quarter: 2004Q3

REPORT INFORMATION
  Report Type: 
  Country: None (occurrence: None)
  Receive Date: 20040803
  Receipt Date: 20040727
  Transmission Date: 20050211
  Serious: Yes (Other)
  Sender: FDA-Public Use
  Company Number: 200415684US

PATIENT
  Age: 28 Year
  Sex: Female

DRUGS (1)
  1. ANZEMET [Suspect]
     Indication: VOMITING
     Dates: start: 20030828, end: 20031106

REACTIONS (4)
  - CAESAREAN SECTION [None]
  - CERVICAL INCOMPETENCE [None]
  - DRUG EXPOSURE DURING PREGNANCY [None]
  - PREMATURE LABOUR [None]
